FAERS Safety Report 7073156-2 (Version None)
Quarter: 2010Q4

REPORT INFORMATION
  Report Type: 
  Country: None (occurrence: None)
  Receive Date: 20101029
  Receipt Date: 20100726
  Transmission Date: 20110411
  Serious: No
  Sender: FDA-Public Use
  Company Number: A0857921A

PATIENT
  Age: 62 Year
  Sex: Male

DRUGS (4)
  1. ADVAIR DISKUS 100/50 [Suspect]
     Indication: PRODUCT USED FOR UNKNOWN INDICATION
     Dosage: 1PUFF TWICE PER DAY
     Route: 055
  2. FLUTICASONE NASAL [Concomitant]
  3. ASTELIN [Concomitant]
     Route: 045
  4. SPIRIVA [Concomitant]

REACTIONS (2)
  - PRODUCT QUALITY ISSUE [None]
  - RESPIRATION ABNORMAL [None]
